FAERS Safety Report 8928923 (Version 1)
Quarter: 2012Q4

REPORT INFORMATION
  Report Type: 
  Country: NO (occurrence: NO)
  Receive Date: 20121128
  Receipt Date: 20121128
  Transmission Date: 20130627
  Serious: Yes (Other)
  Sender: FDA-Public Use
  Company Number: NO-ACCORD-015289

PATIENT

DRUGS (4)
  1. MYCOPHENOLATE MOFETIL [Suspect]
     Indication: PROPHYLAXIS AGAINST TRANSPLANT REJECTION
  2. PREDNISOLONE [Suspect]
     Indication: PROPHYLAXIS AGAINST TRANSPLANT REJECTION
  3. BUSULFAN [Suspect]
     Indication: ALLOGENIC STEM CELL TRANSPLANTATION
  4. TACROLIMUS [Suspect]
     Indication: IMMUNOSUPPRESSION

REACTIONS (5)
  - Chronic graft versus host disease [Unknown]
  - Obliterative bronchiolitis [Unknown]
  - Stenotrophomonas infection [Unknown]
  - Acute graft versus host disease [Unknown]
  - Off label use [Unknown]
